FAERS Safety Report 5328658-3 (Version None)
Quarter: 2007Q2

REPORT INFORMATION
  Report Type: 
  Country: None (occurrence: None)
  Receive Date: 20070518
  Receipt Date: 20070514
  Transmission Date: 20071010
  Serious: Yes (Death)
  Sender: FDA-Public Use
  Company Number: A0625668A

PATIENT
  Age: 46 Year
  Sex: Male
  Weight: 77.3 kg

DRUGS (3)
  1. PAXIL [Suspect]
     Indication: DEPRESSION
  2. HYDROCODONE BITARTRATE [Suspect]
  3. ETHANOL [Suspect]

REACTIONS (7)
  - ALCOHOL POISONING [None]
  - COMPLETED SUICIDE [None]
  - CONTUSION [None]
  - DRUG TOXICITY [None]
  - GUN SHOT WOUND [None]
  - HEAD INJURY [None]
  - SKULL FRACTURE [None]
